FAERS Safety Report 16702696 (Version 1)
Quarter: 2019Q3

REPORT INFORMATION
  Report Type: Report from Study
  Country: None (occurrence: DE)
  Receive Date: 20190814
  Receipt Date: 20190814
  Transmission Date: 20191004
  Serious: Yes (Other)
  Sender: FDA-Public Use
  Company Number: DE-ABBVIE-19K-062-2883117-00

PATIENT
  Sex: Female

DRUGS (7)
  1. CANDESARTAN. [Concomitant]
     Active Substance: CANDESARTAN
     Indication: HYPERTENSION
  2. HUMIRA [Suspect]
     Active Substance: ADALIMUMAB
     Indication: COLITIS ULCERATIVE
     Route: 058
     Dates: start: 201903
  3. METOPROLOL. [Concomitant]
     Active Substance: METOPROLOL
     Indication: HYPERTENSION
  4. GODAMED [Concomitant]
     Active Substance: ASPIRIN
     Indication: HYPERTENSION
  5. MESALAZIN [Concomitant]
     Active Substance: MESALAMINE
     Indication: COLITIS ULCERATIVE
  6. PREDNISOLON [Suspect]
     Active Substance: PREDNISOLONE
     Indication: INFLAMMATORY MARKER INCREASED
     Route: 065
     Dates: start: 201905
  7. FLECAINIDE [Concomitant]
     Active Substance: FLECAINIDE
     Indication: ARRHYTHMIA

REACTIONS (6)
  - Inflammatory marker increased [Recovering/Resolving]
  - Hyperhidrosis [Not Recovered/Not Resolved]
  - Erythema [Not Recovered/Not Resolved]
  - Systemic lupus erythematosus [Not Recovered/Not Resolved]
  - Rosacea [Not Recovered/Not Resolved]
  - Fluid retention [Not Recovered/Not Resolved]

NARRATIVE: CASE EVENT DATE: 2019
